FAERS Safety Report 24138121 (Version 2)
Quarter: 2024Q3

REPORT INFORMATION
  Report Type: Spontaneous
  Country: US (occurrence: US)
  Receive Date: 20240725
  Receipt Date: 20240801
  Transmission Date: 20241017
  Serious: No
  Sender: NOVARTIS
  Company Number: US-002147023-NVSC2024US152022

PATIENT
  Sex: Male

DRUGS (3)
  1. LUTATHERA [Suspect]
     Active Substance: LUTETIUM OXODOTREOTIDE LU-177
     Indication: Gastroenteropancreatic neuroendocrine tumour disease
     Dosage: 7400 MBQ, ONCE/SINGLE
     Route: 042
     Dates: start: 20240723, end: 20240723
  2. LYSINE [Concomitant]
     Active Substance: LYSINE
     Indication: Prophylaxis
     Dosage: 440 ML
     Route: 042
  3. ARGININE [Concomitant]
     Active Substance: ARGININE
     Indication: Prophylaxis
     Dosage: 440 UNK
     Route: 042

REACTIONS (2)
  - Amino acid level abnormal [Unknown]
  - Exposure to radiation [Unknown]

NARRATIVE: CASE EVENT DATE: 20240723
